FAERS Safety Report 8862420 (Version 1)
Quarter: 2012Q4

REPORT INFORMATION
  Report Type: 
  Country: US (occurrence: US)
  Receive Date: 20121026
  Receipt Date: 20121026
  Transmission Date: 20130627
  Serious: Yes (Other)
  Sender: FDA-Public Use
  Company Number: PHEH2012US020802

PATIENT
  Sex: Female

DRUGS (6)
  1. TRILEPTAL [Suspect]
  2. KLONOPIN [Concomitant]
     Dosage: 2 mg, BID
  3. AMPHETAMINE [Concomitant]
     Dosage: 30 mg, BID
  4. SUBOXONE [Concomitant]
     Dosage: 8.2 mg, BID
  5. PROZAC [Concomitant]
  6. QUETIAPINE FUMARATE [Concomitant]
     Dosage: 100 mg, UNK

REACTIONS (1)
  - Hallucination [Unknown]
